FAERS Safety Report 4501094-5 (Version None)
Quarter: 2004Q4

REPORT INFORMATION
  Report Type: 
  Country: None (occurrence: None)
  Receive Date: 20041110
  Receipt Date: 20041029
  Transmission Date: 20050328
  Serious: Yes (Hospitalization)
  Sender: FDA-Public Use
  Company Number: 2004239590US

PATIENT
  Age: 64 Year
  Sex: Male

DRUGS (17)
  1. CAMPTOSAR [Suspect]
     Indication: COLORECTAL CANCER METASTATIC
     Dosage: 600 MG, CYCLIC, IV
     Route: 042
     Dates: start: 20040927, end: 20040927
  2. FLOVENT [Concomitant]
  3. SEREVENT [Concomitant]
  4. DURAGESIC [Concomitant]
  5. LASIX [Concomitant]
  6. POTASSIUM [Concomitant]
  7. IRON [Concomitant]
  8. MULTIVITAMINS (ERGOCALCIFEROL, RETINOL, PANTHENOL) [Concomitant]
  9. SPIRONOLACTONE [Concomitant]
  10. METAMUCIL-2 [Concomitant]
  11. TOPROL (METOPROLOL SUCCINATE) [Concomitant]
  12. TRAZODONE HCL [Concomitant]
  13. XANAX [Concomitant]
  14. PAXIL [Concomitant]
  15. LONOX [Concomitant]
  16. COMPAZINE [Concomitant]
  17. OXYCODONE (OXYCODONE) [Concomitant]

REACTIONS (34)
  - ABASIA [None]
  - ABDOMINAL PAIN LOWER [None]
  - ABDOMINAL PAIN UPPER [None]
  - AMMONIA INCREASED [None]
  - ANAEMIA [None]
  - ANOREXIA [None]
  - ASPARTATE AMINOTRANSFERASE INCREASED [None]
  - ASTHENIA [None]
  - ATAXIA [None]
  - BLOOD ALBUMIN DECREASED [None]
  - BLOOD ALKALINE PHOSPHATASE INCREASED [None]
  - BLOOD BILIRUBIN INCREASED [None]
  - BLOOD PRESSURE DECREASED [None]
  - COAGULOPATHY [None]
  - COLON CANCER RECURRENT [None]
  - CONFUSIONAL STATE [None]
  - DELIRIUM [None]
  - DIARRHOEA [None]
  - ELECTROCARDIOGRAM T WAVE INVERSION [None]
  - FAECAL INCONTINENCE [None]
  - FAECAL OCCULT BLOOD POSITIVE [None]
  - FEBRILE NEUTROPENIA [None]
  - HEART RATE INCREASED [None]
  - HEPATIC FAILURE [None]
  - HICCUPS [None]
  - HYPERCALCAEMIA [None]
  - LOBAR PNEUMONIA [None]
  - MALAISE [None]
  - NAUSEA [None]
  - OEDEMA PERIPHERAL [None]
  - PERFORMANCE STATUS DECREASED [None]
  - PROTEIN TOTAL DECREASED [None]
  - RESPIRATORY RATE INCREASED [None]
  - THROMBOCYTOPENIA [None]
